FAERS Safety Report 4463279-6 (Version None)
Quarter: 2004Q3

REPORT INFORMATION
  Report Type: 
  Country: None (occurrence: None)
  Receive Date: 20040930
  Receipt Date: 20040929
  Transmission Date: 20050211
  Serious: Yes (Other)
  Sender: FDA-Public Use
  Company Number: 2004018823

PATIENT
  Age: 28 Year
  Sex: Female

DRUGS (4)
  1. STAPHYLEX [Suspect]
     Route: 048
  2. AMOXICILLIN [Suspect]
     Route: 048
  3. CETIRIZIN [Suspect]
     Route: 048
  4. CYPROHEPTADINE HCL [Suspect]
     Route: 048

REACTIONS (4)
  - CONVULSION [None]
  - INTENTIONAL OVERDOSE [None]
  - SOMNOLENCE [None]
  - SUICIDE ATTEMPT [None]
